FAERS Safety Report 9508877 (Version 1)
Quarter: 2013Q3

REPORT INFORMATION
  Report Type: Spontaneous
  Country: US (occurrence: US)
  Receive Date: 20130909
  Receipt Date: 20130909
  Transmission Date: 20140515
  Serious: No
  Sender: FDA-Public Use
  Company Number: US-BRISTOL-MYERS SQUIBB COMPANY-17428004

PATIENT
  Age: 30 Year
  Sex: Female

DRUGS (3)
  1. ABILIFY INJECTION [Suspect]
     Indication: AGITATION
     Dosage: 1DF: 9.75 MG/1.3 ML
  2. RISPERDAL [Concomitant]
  3. PAROXETINE [Concomitant]

REACTIONS (1)
  - Incorrect dose administered [Unknown]
